FAERS Safety Report 5621674-3 (Version None)
Quarter: 2008Q1

REPORT INFORMATION
  Report Type: 
  Country: None (occurrence: None)
  Receive Date: 20080211
  Receipt Date: 20080128
  Transmission Date: 20080703
  Serious: Yes (Hospitalization)
  Sender: FDA-Public Use
  Company Number: US-AMGEN-QUU260208

PATIENT
  Sex: Female
  Weight: 61.3 kg

DRUGS (5)
  1. ENBREL [Suspect]
     Indication: RHEUMATOID ARTHRITIS
     Route: 058
     Dates: start: 20060301
  2. METHOTREXATE [Concomitant]
     Dates: start: 19980101
  3. SYNTHROID [Concomitant]
  4. METOPROLOL TARTRATE [Concomitant]
  5. CELEXA [Concomitant]

REACTIONS (4)
  - CHEST PAIN [None]
  - HYPERLIPIDAEMIA [None]
  - PALPITATIONS [None]
  - TRACHEOBRONCHITIS [None]
